FAERS Safety Report 25705904 (Version 1)
Quarter: 2025Q3

REPORT INFORMATION
  Report Type: Spontaneous
  Country: US (occurrence: None)
  Receive Date: 20250819
  Receipt Date: 20250819
  Transmission Date: 20251021
  Serious: Yes (Life-Threatening, Hospitalization)
  Sender: FDA-CTU
  Company Number: None

PATIENT
  Age: 34 Year
  Sex: Male

DRUGS (4)
  1. RIVAROXABAN [Suspect]
     Active Substance: RIVAROXABAN
  2. ASPIRIN [Suspect]
     Active Substance: ASPIRIN
  3. RIVAROXABAN [Concomitant]
     Active Substance: RIVAROXABAN
  4. ASPIRIN [Concomitant]
     Active Substance: ASPIRIN

REACTIONS (2)
  - Epistaxis [None]
  - Transfusion [None]

NARRATIVE: CASE EVENT DATE: 20241213
